FAERS Safety Report 19115814 (Version 1)
Quarter: 2021Q2

REPORT INFORMATION
  Report Type: Other
  Country: GB (occurrence: GB)
  Receive Date: 20210409
  Receipt Date: 20210409
  Transmission Date: 20210717
  Serious: Yes (Disabling, Other)
  Sender: FDA-Public Use
  Company Number: GB-ASTELLAS-2021US012383

PATIENT
  Age: 78 Year
  Sex: Male

DRUGS (6)
  1. GLICLAZIDE [Concomitant]
     Active Substance: GLICLAZIDE
     Indication: PRODUCT USED FOR UNKNOWN INDICATION
     Dosage: 80 MG, 2 TABLET, ONCE DAILY AT MOENING TAKE WITH OR AFTER FOOD
     Route: 065
     Dates: start: 20210118
  2. TRULICITY [Concomitant]
     Active Substance: DULAGLUTIDE
     Indication: PRODUCT USED FOR UNKNOWN INDICATION
     Dosage: UNK UNK, ONCE WEEKLY
     Route: 065
     Dates: start: 20210118
  3. COCODAMOL [Concomitant]
     Active Substance: ACETAMINOPHEN\CODEINE PHOSPHATE
     Indication: PRODUCT USED FOR UNKNOWN INDICATION
     Dosage: 1?2 TABLETS UP TO FOUR TIMES DAILY (30MG/500MG)
     Route: 065
     Dates: start: 20210329
  4. MIRABEGRON [Suspect]
     Active Substance: MIRABEGRON
     Indication: LOWER URINARY TRACT SYMPTOMS
     Route: 065
  5. LOSARTAN AND HYDROCHLOROTHIAZIDE [Concomitant]
     Active Substance: HYDROCHLOROTHIAZIDE\LOSARTAN POTASSIUM
     Indication: PRODUCT USED FOR UNKNOWN INDICATION
     Dosage: 1 DF, ONCE DAILY, (LOSARTAN 100MG / HYDROCHLOROTHIAZIDE 25MG)
     Route: 065
     Dates: start: 20210118
  6. LOPERAMIDE [Concomitant]
     Active Substance: LOPERAMIDE
     Indication: DIARRHOEA
     Dosage: 2 MG, 2 TABLETS THEN 1 AFTER EACH LOOSE STOOL WHEN REQUIRED
     Route: 065
     Dates: start: 20210219

REACTIONS (2)
  - Confusional state [Recovering/Resolving]
  - Diarrhoea [Unknown]

NARRATIVE: CASE EVENT DATE: 20210301
